FAERS Safety Report 7226653-0 (Version None)
Quarter: 2011Q1

REPORT INFORMATION
  Report Type: 
  Country: None (occurrence: None)
  Receive Date: 20110107
  Receipt Date: 20110107
  Transmission Date: 20110831
  Serious: Yes (Hospitalization)
  Sender: FDA-Public Use
  Company Number: None

PATIENT
  Age: 75 Year
  Sex: Female
  Weight: 57 kg

DRUGS (1)
  1. PROPOFOL [Suspect]
     Indication: BARRETT'S OESOPHAGUS
     Dosage: 100 IV BOLUS; 200 IV DRIP
     Route: 040

REACTIONS (1)
  - PANCREATITIS ACUTE [None]
